FAERS Safety Report 8473476-0 (Version None)
Quarter: 2012Q2

REPORT INFORMATION
  Report Type: 
  Country: None (occurrence: None)
  Receive Date: 20120613
  Receipt Date: 20120613
  Transmission Date: 20120825
  Serious: Yes (Disabling)
  Sender: FDA-Public Use
  Company Number: None

PATIENT
  Age: 49 Year
  Sex: Male
  Weight: 22.6799 kg

DRUGS (1)
  1. INFLIXIMAB REMICADE 400 ML NETHARLAND'S JEHNSON [Suspect]
     Dosage: 400 ML 2 MONTHS IV DRIP
     Route: 041
     Dates: start: 20120312

REACTIONS (4)
  - BLOOD COUNT ABNORMAL [None]
  - TUBERCULOSIS [None]
  - PAIN [None]
  - GENERAL PHYSICAL HEALTH DETERIORATION [None]
